FAERS Safety Report 8886460 (Version 2)
Quarter: 2012Q4

REPORT INFORMATION
  Report Type: 
  Country: NO (occurrence: NO)
  Receive Date: 20121105
  Receipt Date: 20121126
  Transmission Date: 20130627
  Serious: Yes (Hospitalization)
  Sender: FDA-Public Use
  Company Number: NO-GLAXOSMITHKLINE-B0842055A

PATIENT
  Age: 84 Year
  Sex: Female

DRUGS (10)
  1. REVOLADE [Suspect]
     Indication: IDIOPATHIC THROMBOCYTOPENIC PURPURA
     Dosage: 25MG Per day
     Route: 048
     Dates: start: 20120921
  2. CELLUVISC [Concomitant]
  3. PREDNISOLON [Concomitant]
     Indication: IDIOPATHIC THROMBOCYTOPENIC PURPURA
     Dosage: 20MG Per day
     Route: 048
  4. PARACET [Concomitant]
  5. MYCOSTATIN [Concomitant]
     Indication: CANDIDIASIS
     Dosage: 1ML Four times per day
  6. DIURAL [Concomitant]
     Dosage: 20MG Per day
     Route: 048
  7. LOSEC [Concomitant]
     Dosage: 20MG Per day
     Route: 048
  8. LACTULOSE [Concomitant]
     Indication: CONSTIPATION
     Dosage: 15ML Twice per day
     Route: 048
  9. ZANIDIP [Concomitant]
     Indication: HYPERTENSION
     Dosage: 10MG Per day
     Route: 048
  10. OFTAN [Concomitant]
     Route: 047

REACTIONS (1)
  - Pulmonary embolism [Recovering/Resolving]
